FAERS Safety Report 14225216 (Version 2)
Quarter: 2017Q4

REPORT INFORMATION
  Report Type: Report from Study
  Country: BR (occurrence: BR)
  Receive Date: 20171127
  Receipt Date: 20171212
  Transmission Date: 20180321
  Serious: Yes (Hospitalization, Other)
  Sender: FDA-Public Use
  Company Number: PHHY2017BR100682

PATIENT
  Age: 81 Year
  Sex: Female
  Weight: 41 kg

DRUGS (6)
  1. VITAMIN D [Concomitant]
     Active Substance: CHOLECALCIFEROL
     Indication: OSTEOPOROSIS
     Dosage: 2 DF (1000 IU), QD START 3 YEARS AGO
     Route: 048
  2. SIMVASTATIN. [Concomitant]
     Active Substance: SIMVASTATIN
     Indication: BLOOD CHOLESTEROL INCREASED
     Dosage: 1 DF, QD (START 9 YEARS AGO)
     Route: 048
  3. CALCIUM [Suspect]
     Active Substance: CALCIUM
     Indication: OSTEOPOROSIS
     Route: 065
  4. ACLASTA [Suspect]
     Active Substance: ZOLEDRONIC ACID
     Indication: OSTEOPOROSIS
     Dosage: 1 DF (5MG/100ML), Q12MO
     Route: 042
     Dates: start: 201601
  5. PURAN [Concomitant]
     Active Substance: LEVOTHYROXINE SODIUM
     Indication: THYROID DISORDER
     Dosage: 1 DF, QD
     Route: 048
     Dates: start: 2017
  6. ACLASTA [Suspect]
     Active Substance: ZOLEDRONIC ACID
     Dosage: 1 DF (5MG/100ML), Q12MO
     Route: 042
     Dates: start: 20170106

REACTIONS (11)
  - Femur fracture [Recovering/Resolving]
  - Intestinal obstruction [Recovered/Resolved]
  - Rib fracture [Recovering/Resolving]
  - Limb discomfort [Recovering/Resolving]
  - Arrhythmia [Recovered/Resolved]
  - Road traffic accident [Unknown]
  - Upper limb fracture [Recovering/Resolving]
  - Body height decreased [Unknown]
  - Hip fracture [Recovering/Resolving]
  - Weight increased [Unknown]
  - Gait disturbance [Recovering/Resolving]

NARRATIVE: CASE EVENT DATE: 2016
